FAERS Safety Report 5046639-4 (Version None)
Quarter: 2006Q3

REPORT INFORMATION
  Report Type: 
  Country: None (occurrence: None)
  Receive Date: 20060707
  Receipt Date: 20060707
  Transmission Date: 20061208
  Serious: Yes (Hospitalization)
  Sender: FDA-Public Use
  Company Number: None

PATIENT
  Age: 42 Year
  Sex: Male

DRUGS (13)
  1. NAPROXEN [Suspect]
     Indication: MIGRAINE
     Dosage: 500 MG PO BID
     Route: 048
     Dates: start: 20060208, end: 20060530
  2. ALBUTEROL SULFATE AND IPRATROPIUM BROMIDE [Concomitant]
  3. ALBUTEROL SPIROS [Concomitant]
  4. SUMATRIPTAN SUCCINATE [Concomitant]
  5. PFOMETHAZINE HCL [Concomitant]
  6. MONTELUKAST NA [Concomitant]
  7. TRAMADOL HCL [Concomitant]
  8. GABAPENTIN [Concomitant]
  9. PANTOPRAZOLE SODIUM [Concomitant]
  10. ADVAIR DISKUS 100/50 [Concomitant]
  11. CYCLOBENZAPRINE HCL [Concomitant]
  12. NAPROXEN [Concomitant]
  13. METOCLOPRAMIDE HCL [Concomitant]

REACTIONS (3)
  - CONDITION AGGRAVATED [None]
  - GASTROINTESTINAL HAEMORRHAGE [None]
  - HAEMATOCRIT DECREASED [None]
